FAERS Safety Report 9888126 (Version 2)
Quarter: 2014Q1

REPORT INFORMATION
  Report Type: Spontaneous
  Country: FR (occurrence: None)
  Receive Date: 20140207
  Receipt Date: 20140306
  Transmission Date: 20141002
  Serious: Yes (Other)
  Sender: FDA-Public Use
  Company Number: 2014FR0035

PATIENT
  Sex: Male

DRUGS (4)
  1. KINERET [Suspect]
     Indication: JUVENILE IDIOPATHIC ARTHRITIS
     Dates: start: 20131230, end: 20131231
  2. CTX (METHYLPREDNISOLONE) (METHYLPREDNISOLONE) [Concomitant]
  3. SOLUPRED (PREDNISOLONE) (PREDNISOLONE) [Concomitant]
  4. SANDIMINE (CICLOSPORIN) (CICLOSPORIN) [Concomitant]

REACTIONS (3)
  - Histiocytosis haematophagic [None]
  - Human herpesvirus 6 infection [None]
  - Respiratory syncytial virus test positive [None]
